FAERS Safety Report 14571274 (Version 1)
Quarter: 2018Q1

REPORT INFORMATION
  Report Type: Report from Study
  Country: CA (occurrence: CA)
  Receive Date: 20180226
  Receipt Date: 20180226
  Transmission Date: 20180509
  Serious: Yes (Death, Hospitalization)
  Sender: FDA-Public Use
  Company Number: PHHY2018CA022253

PATIENT
  Age: 87 Year
  Sex: Female
  Weight: 77.9 kg

DRUGS (1)
  1. AFINITOR [Suspect]
     Active Substance: EVEROLIMUS
     Indication: BREAST CANCER
     Dosage: 2.5 MG, QD
     Route: 048
     Dates: start: 20161115

REACTIONS (8)
  - Acute coronary syndrome [Fatal]
  - Interstitial lung disease [Fatal]
  - Acute myocardial infarction [Fatal]
  - Angina pectoris [Fatal]
  - Myocardial infarction [Fatal]
  - Cardiac failure congestive [Fatal]
  - Dyspnoea [Fatal]
  - Dyspnoea exertional [Fatal]

NARRATIVE: CASE EVENT DATE: 20180122
